FAERS Safety Report 9260013 (Version 2)
Quarter: 2013Q3

REPORT INFORMATION
  Report Type: Spontaneous
  Country: FR (occurrence: FR)
  Receive Date: 20130429
  Receipt Date: 20130807
  Transmission Date: 20140515
  Serious: Yes (Hospitalization, Other)
  Sender: FDA-Public Use
  Company Number: FR-JNJFOC-20130413035

PATIENT
  Age: 65 Year
  Sex: Male

DRUGS (9)
  1. XARELTO [Suspect]
     Indication: EMBOLISM VENOUS
     Route: 048
     Dates: start: 20130226, end: 20130320
  2. XARELTO [Suspect]
     Indication: EMBOLISM VENOUS
     Route: 048
     Dates: start: 20130320, end: 20130403
  3. XARELTO [Suspect]
     Indication: DEEP VEIN THROMBOSIS
     Route: 048
     Dates: start: 20130226, end: 20130320
  4. XARELTO [Suspect]
     Indication: DEEP VEIN THROMBOSIS
     Route: 048
     Dates: start: 20130320, end: 20130403
  5. IKOREL [Concomitant]
     Dosage: DAILY DOSE 2 DF
     Route: 065
  6. KARDEGIC [Concomitant]
     Dosage: DAILY DOSE 1DF
     Route: 065
  7. ISOPTIN [Concomitant]
     Dosage: DAILY DOSE 3 DF
     Route: 065
  8. INEGY [Concomitant]
     Dosage: DAILY DOSE 1 DF
     Route: 065
  9. INEXIUM [Concomitant]
     Dosage: DAILY DOSE 1 DF
     Route: 065

REACTIONS (3)
  - Deep vein thrombosis [Recovering/Resolving]
  - Cerebrovascular accident [Unknown]
  - Drug ineffective [Unknown]
